FAERS Safety Report 9006319 (Version 3)
Quarter: 2015Q3

REPORT INFORMATION
  Report Type: Spontaneous
  Country: US (occurrence: US)
  Receive Date: 20130110
  Receipt Date: 20150910
  Transmission Date: 20151125
  Serious: Yes (Hospitalization)
  Sender: FDA-Public Use
  Company Number: US-BIOGENIDEC-2013BI001360

PATIENT
  Age: 45 Year
  Sex: Female

DRUGS (1)
  1. AVONEX [Suspect]
     Active Substance: INTERFERON BETA-1A
     Indication: MULTIPLE SCLEROSIS
     Route: 030
     Dates: start: 20121221, end: 20121221

REACTIONS (7)
  - Adverse drug reaction [Recovered/Resolved]
  - Hypersomnia [Recovered/Resolved]
  - Mental status changes [Unknown]
  - Memory impairment [Recovered/Resolved]
  - Hallucinations, mixed [Recovered/Resolved]
  - Influenza like illness [Recovered/Resolved]
  - Somnolence [Unknown]

NARRATIVE: CASE EVENT DATE: 20121221
